FAERS Safety Report 5509433-3 (Version None)
Quarter: 2007Q4

REPORT INFORMATION
  Report Type: 
  Country: None (occurrence: None)
  Receive Date: 20071106
  Receipt Date: 20071019
  Transmission Date: 20080405
  Serious: Yes (Other)
  Sender: FDA-Public Use
  Company Number: 8027312

PATIENT
  Age: 9 Year
  Sex: Male
  Weight: 34.1 kg

DRUGS (2)
  1. METADATE CD [Suspect]
     Indication: DISTURBANCE IN ATTENTION
     Dosage: 10 MG 1/D PO
     Route: 048
     Dates: start: 20070515, end: 20070930
  2. METADATE CD [Suspect]
     Indication: PSYCHOMOTOR HYPERACTIVITY
     Dosage: 10 MG 1/D PO
     Route: 048
     Dates: start: 20070515, end: 20070930

REACTIONS (3)
  - MOVEMENT DISORDER [None]
  - PSYCHOMOTOR HYPERACTIVITY [None]
  - TIC [None]
